FAERS Safety Report 8279902-4 (Version None)
Quarter: 2012Q2

REPORT INFORMATION
  Report Type: 
  Country: None (occurrence: None)
  Receive Date: 20120412
  Receipt Date: 20111228
  Transmission Date: 20120825
  Serious: No
  Sender: FDA-Public Use
  Company Number: US-ASTRAZENECA-2011SE76440

PATIENT
  Age: 60 Year
  Sex: Female
  Weight: 87.1 kg

DRUGS (12)
  1. SEROQUEL [Suspect]
     Route: 048
  2. SEROQUEL [Suspect]
     Route: 048
  3. LAMAXIL [Concomitant]
  4. NEXIUM [Suspect]
     Route: 048
  5. SEROQUEL [Suspect]
     Route: 048
  6. CLONAPINE [Concomitant]
  7. SEROQUEL [Suspect]
     Indication: SLEEP DISORDER
     Route: 048
  8. SEROQUEL [Suspect]
     Dosage: ONE AND A HALF TO TWO TABLETS OF 100MG
     Route: 048
  9. PROZAC [Concomitant]
  10. SEROQUEL [Suspect]
     Route: 048
  11. SEROQUEL [Suspect]
     Indication: BIPOLAR DISORDER
     Route: 048
  12. SEROQUEL [Suspect]
     Dosage: ONE AND A HALF TO TWO TABLETS OF 100MG
     Route: 048

REACTIONS (9)
  - DRUG INEFFECTIVE [None]
  - MALAISE [None]
  - PHARYNGITIS STREPTOCOCCAL [None]
  - INSOMNIA [None]
  - CONFUSIONAL STATE [None]
  - PNEUMONIA [None]
  - DRUG DOSE OMISSION [None]
  - OROPHARYNGEAL PAIN [None]
  - DRUG PRESCRIBING ERROR [None]
